FAERS Safety Report 8049062-3 (Version None)
Quarter: 2012Q1

REPORT INFORMATION
  Report Type: 
  Country: None (occurrence: None)
  Receive Date: 20120117
  Receipt Date: 20120102
  Transmission Date: 20120608
  Serious: Yes (Hospitalization)
  Sender: FDA-Public Use
  Company Number: IT-CELGENEUS-083-21880-11122707

PATIENT
  Sex: Male

DRUGS (4)
  1. REVLIMID [Suspect]
     Dosage: 10 MILLIGRAM
     Route: 048
     Dates: start: 20080429
  2. MEDROL [Concomitant]
     Dosage: 4 MILLIGRAM
     Route: 048
     Dates: start: 20050115, end: 20090809
  3. EPOGEN [Concomitant]
     Route: 065
  4. REVLIMID [Suspect]
     Route: 048
     Dates: end: 20090809

REACTIONS (1)
  - RECTOSIGMOID CANCER [None]
